FAERS Safety Report 9605574 (Version 3)
Quarter: 2013Q4

REPORT INFORMATION
  Report Type: Spontaneous
  Country: FR (occurrence: FR)
  Receive Date: 20131008
  Receipt Date: 20131025
  Transmission Date: 20140711
  Serious: Yes (Life-Threatening, Hospitalization)
  Sender: FDA-Public Use
  Company Number: FR-JNJFOC-20131004043

PATIENT
  Age: 51 Year
  Sex: Female
  Weight: 68 kg

DRUGS (6)
  1. ECONAZOLE NITRATE [Suspect]
     Indication: FUNGAL INFECTION
     Route: 067
     Dates: start: 20070608, end: 20070611
  2. TRIFLUCAN [Interacting]
     Indication: BRONCHITIS
     Route: 048
     Dates: start: 20070608, end: 20070610
  3. COUMADIN [Interacting]
     Indication: INTERNATIONAL NORMALISED RATIO
     Route: 048
     Dates: start: 20070108
  4. CORTANCYL [Interacting]
     Indication: BRONCHITIS
     Route: 048
     Dates: start: 20070608, end: 20070610
  5. KESTIN [Concomitant]
     Indication: HYPERSENSITIVITY
     Route: 048
     Dates: start: 20070608, end: 20070630
  6. TRIATEC [Concomitant]
     Indication: PRODUCT USED FOR UNKNOWN INDICATION
     Route: 048
     Dates: start: 20070108

REACTIONS (3)
  - Malaise [Recovered/Resolved]
  - International normalised ratio increased [Recovered/Resolved]
  - Drug interaction [Unknown]
